FAERS Safety Report 15389302 (Version 1)
Quarter: 2018Q3

REPORT INFORMATION
  Report Type: Report from Study
  Country: CN (occurrence: CN)
  Receive Date: 20180917
  Receipt Date: 20180917
  Transmission Date: 20181010
  Serious: Yes (Other)
  Sender: FDA-Public Use
  Company Number: CN-ROCHE-2182829

PATIENT

DRUGS (1)
  1. TOCILIZUMAB. [Suspect]
     Active Substance: TOCILIZUMAB
     Indication: STILL^S DISEASE
     Dosage: 12 MG/KG FOR PATIENT WEIGHT {30 KG) OR 8 MG/KG FOR PATIENT WEIGHT  }/= 30 KG
     Route: 042

REACTIONS (5)
  - Infusion related reaction [Recovered/Resolved]
  - Upper respiratory tract infection [Unknown]
  - Rash [Unknown]
  - Renal impairment [Unknown]
  - Hepatic function abnormal [Unknown]
